FAERS Safety Report 7233362-0 (Version None)
Quarter: 2011Q1

REPORT INFORMATION
  Report Type: 
  Country: None (occurrence: None)
  Receive Date: 20110119
  Receipt Date: 20110110
  Transmission Date: 20110831
  Serious: Yes (Hospitalization)
  Sender: FDA-Public Use
  Company Number: US-BRISTOL-MYERS SQUIBB COMPANY-15491988

PATIENT
  Age: 79 Year
  Sex: Male
  Weight: 66 kg

DRUGS (14)
  1. GEMCITABINE [Suspect]
     Indication: NON-SMALL CELL LUNG CANCER
     Dosage: INTERRUPTED ON 15DEC2010(3RD INF)
     Route: 042
     Dates: start: 20101103
  2. DEXAMETHASONE [Concomitant]
     Indication: CHRONIC OBSTRUCTIVE PULMONARY DISEASE
     Route: 048
     Dates: start: 20110113
  3. DIFLUCAN [Concomitant]
     Indication: INFECTION
     Route: 048
     Dates: start: 20110107
  4. LOMOTIL [Concomitant]
     Indication: DIARRHOEA
     Route: 048
  5. MULTIPLE VITAMIN [Concomitant]
     Indication: MEDICAL DIET
     Route: 048
  6. CARBOPLATIN [Suspect]
     Indication: NON-SMALL CELL LUNG CANCER
     Dosage: INTERRUPTED ON 03NOV2010
     Route: 042
     Dates: start: 20101103
  7. CETUXIMAB [Suspect]
     Indication: NON-SMALL CELL LUNG CANCER
     Dosage: INTERRUPTED ON 29DEC2010(9TH INF)
     Route: 042
     Dates: start: 20101103
  8. HYDROCODONE [Concomitant]
     Indication: PAIN
     Route: 065
  9. ALBUTEROL [Concomitant]
     Indication: CHRONIC OBSTRUCTIVE PULMONARY DISEASE
     Dosage: 1 DF = 2 PUFFS
     Route: 065
     Dates: start: 20101018
  10. COMPAZINE [Concomitant]
     Indication: NAUSEA
     Route: 048
  11. VICODIN [Concomitant]
     Indication: PAIN
     Dosage: 1 DF = 5/500 UNITS NOS
     Route: 048
     Dates: start: 20110103
  12. AMLODIPINE [Concomitant]
     Indication: HYPERTENSION
     Route: 048
     Dates: start: 20000101
  13. MULTI-VITAMIN [Concomitant]
     Indication: MEDICAL DIET
     Route: 048
     Dates: start: 20000101
  14. PRAZOSIN HCL [Concomitant]
     Indication: HYPERTENSION
     Route: 048
     Dates: start: 20000101

REACTIONS (2)
  - ATRIAL FIBRILLATION [None]
  - THROMBOSIS [None]
